FAERS Safety Report 7828246-0 (Version None)
Quarter: 2011Q4

REPORT INFORMATION
  Report Type: 
  Country: None (occurrence: None)
  Receive Date: 20111020
  Receipt Date: 20111014
  Transmission Date: 20120403
  Serious: Yes (Life-Threatening)
  Sender: FDA-Public Use
  Company Number: CA-CELGENEUS-028-50794-11101653

PATIENT
  Age: 47 Year
  Sex: Female

DRUGS (1)
  1. VIDAZA [Suspect]
     Dosage: 144 MILLIGRAM
     Route: 058

REACTIONS (2)
  - CARDIAC TAMPONADE [None]
  - PERICARDIAL EFFUSION [None]
